FAERS Safety Report 8277331-0 (Version None)
Quarter: 2012Q2

REPORT INFORMATION
  Report Type: 
  Country: None (occurrence: None)
  Receive Date: 20120412
  Receipt Date: 20120409
  Transmission Date: 20120825
  Serious: Yes (Other)
  Sender: FDA-Public Use
  Company Number: HU-GLAXOSMITHKLINE-B0794809A

PATIENT
  Age: 40 Year
  Sex: Female

DRUGS (2)
  1. LAPATINIB [Suspect]
     Indication: BREAST CANCER
     Route: 065
     Dates: start: 20110407, end: 20120405
  2. CAPECITABINE [Suspect]
     Indication: BREAST CANCER
     Route: 065
     Dates: start: 20110407, end: 20120405

REACTIONS (3)
  - RASH [None]
  - METASTASES TO CENTRAL NERVOUS SYSTEM [None]
  - FATIGUE [None]
